FAERS Safety Report 7669198 (Version 9)
Quarter: 2014Q1

REPORT INFORMATION
  Report Type: Spontaneous
  Country: US (occurrence: US)
  Receive Date: 20101115
  Receipt Date: 20140130
  Transmission Date: 20141002
  Serious: Yes (Hospitalization, Other)
  Sender: FDA-Public Use
  Company Number: US-ROCHE-718757

PATIENT
  Age: 17 Year
  Sex: Female
  Weight: 49.9 kg

DRUGS (2)
  1. ACCUTANE [Suspect]
     Indication: ACNE
     Dosage: 40 MG DAILY ON ODD DAYS AND 80 MG DAILY ON EVEN DAYS
     Route: 048
     Dates: start: 199902, end: 199906
  2. ACCUTANE [Suspect]
     Route: 048
     Dates: start: 199912, end: 200005

REACTIONS (18)
  - Depression [Unknown]
  - Major depression [Unknown]
  - Intestinal obstruction [Unknown]
  - Inflammatory bowel disease [Unknown]
  - Crohn^s disease [Unknown]
  - Gastrointestinal injury [Unknown]
  - Cystitis interstitial [Unknown]
  - Adjustment disorder [Unknown]
  - Arthralgia [Unknown]
  - Malabsorption [Unknown]
  - Anaemia [Unknown]
  - Irritable bowel syndrome [Unknown]
  - Eczema asteatotic [Unknown]
  - Blood triglycerides increased [Unknown]
  - Dry skin [Unknown]
  - Headache [Unknown]
  - Amnesia [Unknown]
  - Colitis ulcerative [Unknown]
